FAERS Safety Report 18239353 (Version 4)
Quarter: 2020Q4

REPORT INFORMATION
  Report Type: Report from Study
  Country: BR (occurrence: BR)
  Receive Date: 20200907
  Receipt Date: 20201122
  Transmission Date: 20210113
  Serious: Yes (Hospitalization, Other)
  Sender: FDA-Public Use
  Company Number: NVSC2020BR245468

PATIENT
  Age: 41 Year
  Sex: Female

DRUGS (5)
  1. AZITHROMYCIN ANHYDROUS. [Suspect]
     Active Substance: AZITHROMYCIN ANHYDROUS
     Indication: PRODUCT USED FOR UNKNOWN INDICATION
     Dosage: UNK
     Route: 065
  2. PANTOPRAZOLE [Suspect]
     Active Substance: PANTOPRAZOLE
     Indication: PRODUCT USED FOR UNKNOWN INDICATION
     Dosage: UNK
     Route: 065
  3. SANDOSTATIN LAR DEPOT [Suspect]
     Active Substance: OCTREOTIDE ACETATE
  4. SANDOSTATIN LAR DEPOT [Suspect]
     Active Substance: OCTREOTIDE ACETATE
     Indication: ACROMEGALY
     Dosage: UNK, QMO
     Route: 065
     Dates: start: 20060601
  5. SANDOSTATIN LAR DEPOT [Suspect]
     Active Substance: OCTREOTIDE ACETATE
     Dosage: UNK
     Route: 065
     Dates: start: 202006

REACTIONS (42)
  - Biliary dilatation [Not Recovered/Not Resolved]
  - Malaise [Not Recovered/Not Resolved]
  - Viral infection [Unknown]
  - Groin pain [Not Recovered/Not Resolved]
  - Hypermetabolism [Unknown]
  - Fatigue [Unknown]
  - Headache [Recovering/Resolving]
  - Dizziness [Not Recovered/Not Resolved]
  - Influenza [Unknown]
  - Inguinal hernia [Not Recovered/Not Resolved]
  - Anxiety [Not Recovered/Not Resolved]
  - Eating disorder [Unknown]
  - Product dose omission issue [Unknown]
  - Needle issue [Unknown]
  - Injury associated with device [Not Recovered/Not Resolved]
  - Product physical consistency issue [Unknown]
  - Helicobacter infection [Recovering/Resolving]
  - Malaise [Recovered/Resolved]
  - Dizziness [Recovered/Resolved]
  - Abdominal pain upper [Recovered/Resolved]
  - Breast cyst [Not Recovered/Not Resolved]
  - Retching [Not Recovered/Not Resolved]
  - Pain [Unknown]
  - Muscle fatigue [Not Recovered/Not Resolved]
  - Cholelithiasis [Recovered/Resolved]
  - Diabetes mellitus [Recovering/Resolving]
  - Nausea [Not Recovered/Not Resolved]
  - Leiomyoma [Not Recovered/Not Resolved]
  - Crying [Unknown]
  - Blood glucose fluctuation [Not Recovered/Not Resolved]
  - Product leakage [Unknown]
  - Constipation [Not Recovered/Not Resolved]
  - Asthenia [Recovered/Resolved]
  - Asthenia [Not Recovered/Not Resolved]
  - Abdominal pain upper [Not Recovered/Not Resolved]
  - Pain in extremity [Not Recovered/Not Resolved]
  - Product solubility abnormal [Unknown]
  - Thyroid cyst [Not Recovered/Not Resolved]
  - Cough [Recovered/Resolved]
  - Fear [Not Recovered/Not Resolved]
  - Suspected COVID-19 [Unknown]
  - Hypertension [Recovering/Resolving]

NARRATIVE: CASE EVENT DATE: 201703
